FAERS Safety Report 6060751-2 (Version None)
Quarter: 2009Q1

REPORT INFORMATION
  Report Type: 
  Country: None (occurrence: None)
  Receive Date: 20090130
  Receipt Date: 20090130
  Transmission Date: 20090719
  Serious: Yes (Other)
  Sender: FDA-Public Use
  Company Number: None

PATIENT
  Sex: Female

DRUGS (2)
  1. ZETIA [Suspect]
     Indication: BLOOD CHOLESTEROL INCREASED
     Dosage: 10 MG 1 A DAY
  2. REQUIP [Suspect]
     Indication: RESTLESS LEGS SYNDROME

REACTIONS (5)
  - DRUG INEFFECTIVE [None]
  - FATIGUE [None]
  - MUSCLE DISORDER [None]
  - MYALGIA [None]
  - MYOCARDIAL INFARCTION [None]
